FAERS Safety Report 7214612-3 (Version None)
Quarter: 2011Q1

REPORT INFORMATION
  Report Type: 
  Country: None (occurrence: None)
  Receive Date: 20110104
  Receipt Date: 20110104
  Transmission Date: 20110831
  Serious: No
  Sender: FDA-Public Use
  Company Number: None

PATIENT
  Age: 29 Year
  Sex: Male
  Weight: 80.7403 kg

DRUGS (1)
  1. OLANZAPINE [Suspect]
     Dosage: 40 MG DAILY PO
     Route: 048

REACTIONS (1)
  - WEIGHT INCREASED [None]
